FAERS Safety Report 6518599-8 (Version None)
Quarter: 2009Q4

REPORT INFORMATION
  Report Type: 
  Country: None (occurrence: None)
  Receive Date: 20091228
  Receipt Date: 20091218
  Transmission Date: 20100525
  Serious: Yes (Hospitalization)
  Sender: FDA-Public Use
  Company Number: US-ELI_LILLY_AND_COMPANY-US200911006583

PATIENT
  Age: 67 Year
  Sex: Female

DRUGS (7)
  1. FORTEO [Suspect]
     Indication: OSTEOPOROSIS
     Dosage: 20 UG, UNK
     Dates: start: 20090325, end: 20091123
  2. LASIX [Concomitant]
     Indication: OEDEMA
     Dosage: 40 MG, DAILY (1/D)
  3. PHENOBARBITAL [Concomitant]
     Indication: CONVULSION
     Dosage: 60 MG, DAILY (1/D)
  4. DILANTIN [Concomitant]
     Indication: CONVULSION
     Dosage: 200 MG, 2/D
  5. ALOPURINOL [Concomitant]
     Indication: BLOOD URIC ACID INCREASED
     Dosage: 100 MG, DAILY (1/D)
  6. VITAMIN D3 [Concomitant]
     Dosage: 4000 IU, DAILY (1/D)
  7. MULTI-VITAMINS [Concomitant]

REACTIONS (1)
  - HYPERCALCAEMIA [None]
